FAERS Safety Report 20986246 (Version 1)
Quarter: 2022Q2

REPORT INFORMATION
  Report Type: Spontaneous
  Country: US (occurrence: None)
  Receive Date: 20220621
  Receipt Date: 20220621
  Transmission Date: 20220721
  Serious: No
  Sender: FDA-Public Use
  Company Number: US-ROCHE-3056292

PATIENT
  Age: 40 Year
  Sex: Female

DRUGS (3)
  1. CAPECITABINE [Suspect]
     Active Substance: CAPECITABINE
     Indication: Product used for unknown indication
     Route: 048
  2. TUKYSA [Suspect]
     Active Substance: TUCATINIB
     Indication: Breast cancer female
     Route: 065
  3. TIZANIDINE [Concomitant]
     Active Substance: TIZANIDINE

REACTIONS (3)
  - Product dose omission issue [Unknown]
  - Adverse drug reaction [Unknown]
  - No adverse event [Unknown]

NARRATIVE: CASE EVENT DATE: 20220314
